FAERS Safety Report 11152487 (Version 1)
Quarter: 2015Q2

REPORT INFORMATION
  Report Type: Spontaneous
  Country: CN (occurrence: CN)
  Receive Date: 20150601
  Receipt Date: 20150601
  Transmission Date: 20150821
  Serious: Yes (Hospitalization, Other)
  Sender: FDA-Public Use
  Company Number: CN-GLAXOSMITHKLINE-CN2015GSK071350

PATIENT
  Age: 57 Year
  Sex: Male
  Weight: 60 kg

DRUGS (2)
  1. HEPTODIN [Suspect]
     Active Substance: LAMIVUDINE
     Indication: HEPATITIS B
     Dosage: 1 DF, QD
     Route: 048
     Dates: start: 2005
  2. YINXINGYE PIAN [Suspect]
     Active Substance: GINKGO
     Indication: SUDDEN HEARING LOSS
     Dosage: 2 UNK, BID
     Route: 048
     Dates: start: 2012

REACTIONS (6)
  - Pain in extremity [Recovering/Resolving]
  - Hepatitis B DNA increased [Recovered/Resolved]
  - Jugular vein distension [Not Recovered/Not Resolved]
  - Tinnitus [Not Recovered/Not Resolved]
  - Sudden hearing loss [Recovering/Resolving]
  - Back pain [Recovering/Resolving]

NARRATIVE: CASE EVENT DATE: 2005
